FAERS Safety Report 6539198-8 (Version None)
Quarter: 2010Q1

REPORT INFORMATION
  Report Type: 
  Country: None (occurrence: None)
  Receive Date: 20100112
  Receipt Date: 20091229
  Transmission Date: 20100710
  Serious: Yes (Hospitalization)
  Sender: FDA-Public Use
  Company Number: 2010SA000933

PATIENT
  Sex: Male

DRUGS (6)
  1. FLUDARABINE PHOSPHATE [Suspect]
     Indication: LYMPHOMA
     Dosage: ORAL
     Route: 048
     Dates: start: 20090101, end: 20090601
  2. RITUXAN [Suspect]
     Indication: LYMPHOMA
     Dates: start: 20090624, end: 20090624
  3. VALACYCLOVIR [Suspect]
     Dates: start: 20090501, end: 20090712
  4. BACTRIM DS [Suspect]
     Dates: start: 20090501, end: 20090712
  5. GRANOCYTE [Concomitant]
  6. PREV MEDS [Concomitant]

REACTIONS (12)
  - BLOOD ALKALINE PHOSPHATASE INCREASED [None]
  - BLOOD CREATININE INCREASED [None]
  - BLOOD SODIUM DECREASED [None]
  - CRYPTOSPORIDIOSIS INFECTION [None]
  - CYTOMEGALOVIRUS INFECTION [None]
  - DEHYDRATION [None]
  - DIARRHOEA [None]
  - DRUG INEFFECTIVE [None]
  - HYPOVOLAEMIC SHOCK [None]
  - PYREXIA [None]
  - RASH PRURITIC [None]
  - SEPSIS [None]
